FAERS Safety Report 10699984 (Version 1)
Quarter: 2014Q4

REPORT INFORMATION
  Report Type: Spontaneous
  Country: CA (occurrence: CA)
  Receive Date: 20141029
  Receipt Date: 20141029
  Transmission Date: 20150529
  Serious: Yes (Other)
  Sender: FDA-Public Use
  Company Number: CA-APOTEX-2014AP005359

PATIENT
  Age: 52 Year
  Sex: Male

DRUGS (8)
  1. GRANISETRON [Suspect]
     Active Substance: GRANISETRON
     Indication: DIARRHOEA
     Dosage: 1 MG, BID
     Route: 065
  2. APO-LEVETIRACETAM [Suspect]
     Active Substance: LEVETIRACETAM
     Dosage: 500 UNK, UNK
  3. OXITRIPTAN [Suspect]
     Active Substance: OXITRIPTAN
     Indication: POST-TRAUMATIC EPILEPSY
     Dosage: 200 MG, TID
     Route: 065
     Dates: start: 20120404
  4. APO-LEVETIRACETAM [Suspect]
     Active Substance: LEVETIRACETAM
     Indication: POST-TRAUMATIC EPILEPSY
     Dosage: 1500 MG, BID
     Route: 065
     Dates: end: 20120203
  5. APO-CLOBAZAM [Suspect]
     Active Substance: CLOBAZAM
     Indication: POST-TRAUMATIC EPILEPSY
     Dosage: 10 MG, BID
     Route: 065
     Dates: end: 20120203
  6. APO-VALPROIC [Suspect]
     Active Substance: VALPROIC ACID
     Indication: POST-TRAUMATIC EPILEPSY
     Dosage: 500 MG, TID
     Route: 065
  7. APO-VALPROIC [Suspect]
     Active Substance: VALPROIC ACID
     Dosage: 250 MG, QID
  8. APO-LEVETIRACETAM [Suspect]
     Active Substance: LEVETIRACETAM
     Dosage: 250 UNK, UNK

REACTIONS (4)
  - Myoclonus [None]
  - Somnolence [Recovering/Resolving]
  - Diarrhoea [Unknown]
  - Condition aggravated [Recovering/Resolving]
